FAERS Safety Report 8337405-2 (Version None)
Quarter: 2012Q2

REPORT INFORMATION
  Report Type: 
  Country: None (occurrence: None)
  Receive Date: 20120504
  Receipt Date: 20110802
  Transmission Date: 20120825
  Serious: No
  Sender: FDA-Public Use
  Company Number: US-TEVA-2011004059

PATIENT
  Sex: Female
  Weight: 55.842 kg

DRUGS (6)
  1. THORAZINE [Concomitant]
     Dates: start: 20080101
  2. REMERON [Concomitant]
     Dates: start: 20080101
  3. SYNTHROID [Concomitant]
     Dates: start: 19900101
  4. TOPAMAX [Concomitant]
     Dates: start: 20060101
  5. PROPRANOLOL [Concomitant]
     Dates: start: 20100101
  6. NUVIGIL [Suspect]
     Indication: APATHY
     Dosage: 125 MILLIGRAM;
     Route: 048
     Dates: start: 20110510

REACTIONS (3)
  - ORAL PAIN [None]
  - SENSITIVITY OF TEETH [None]
  - AGITATION [None]
